FAERS Safety Report 7865753-9 (Version None)
Quarter: 2011Q4

REPORT INFORMATION
  Report Type: 
  Country: None (occurrence: None)
  Receive Date: 20111028
  Receipt Date: 20110217
  Transmission Date: 20120403
  Serious: No
  Sender: FDA-Public Use
  Company Number: US-GLAXOSMITHKLINE-A0914191A

PATIENT
  Age: 75 Year
  Sex: Female

DRUGS (3)
  1. THEO-DUR [Concomitant]
  2. VENTOLIN [Concomitant]
  3. ADVAIR DISKUS 100/50 [Suspect]
     Indication: CHRONIC OBSTRUCTIVE PULMONARY DISEASE
     Dosage: 1PUFF TWICE PER DAY
     Route: 055
     Dates: start: 20030101

REACTIONS (2)
  - PRODUCT QUALITY ISSUE [None]
  - WHEEZING [None]
